FAERS Safety Report 8442981-5 (Version None)
Quarter: 2012Q2

REPORT INFORMATION
  Report Type: 
  Country: None (occurrence: None)
  Receive Date: 20120615
  Receipt Date: 20120612
  Transmission Date: 20120825
  Serious: Yes (Death, Hospitalization)
  Sender: FDA-Public Use
  Company Number: FR-B.I. PHARMACEUTICALS,INC./RIDGEFIELD-2012-FF-00722FF

PATIENT
  Age: 84 Year
  Sex: Female

DRUGS (6)
  1. OMEPRAZOLE [Concomitant]
  2. FELODIPINE [Concomitant]
  3. PRADAXA [Suspect]
     Indication: ATRIAL FIBRILLATION
     Dosage: 220 MG
     Route: 048
     Dates: start: 20110301, end: 20110301
  4. FLECAINIDE ACETATE [Concomitant]
  5. ASPIRIN [Suspect]
  6. PRAVASTATIN [Concomitant]

REACTIONS (4)
  - COLON NEOPLASM [None]
  - METASTASES TO LIVER [None]
  - ANAEMIA [None]
  - GASTROINTESTINAL HAEMORRHAGE [None]
